FAERS Safety Report 5840242-1 (Version None)
Quarter: 2008Q3

REPORT INFORMATION
  Report Type: 
  Country: None (occurrence: None)
  Receive Date: 20080730
  Receipt Date: 20080529
  Transmission Date: 20090109
  Serious: No
  Sender: FDA-Public Use
  Company Number: 2008-US-000300

PATIENT
  Age: 7 Year
  Sex: Male
  Weight: 17.6 kg

DRUGS (4)
  1. INCRELEX [Suspect]
     Indication: GROWTH RETARDATION
     Dosage: 0.4 MG, BID, SUBCUTANEOUS
     Route: 058
     Dates: start: 20080327, end: 20080403
  2. ALBUTEROL /00139501/ (SALBUTAMOL) [Concomitant]
  3. PULMICORT [Concomitant]
  4. ORAPRED /00016201/ (PREDNISOLONE) [Concomitant]

REACTIONS (3)
  - PRURITUS [None]
  - RASH [None]
  - URTICARIA [None]
